FAERS Safety Report 7637536 (Version 2)
Quarter: 2012Q4

REPORT INFORMATION
  Report Type: Report from Study
  Country: DE (occurrence: DE)
  Receive Date: 20101022
  Receipt Date: 20121221
  Transmission Date: 20130627
  Serious: Yes (Hospitalization, Other)
  Sender: FDA-Public Use
  Company Number: PHHO2010DE13329

PATIENT
  Age: 69 Year
  Sex: Male
  Weight: 106 kg

DRUGS (8)
  1. STI571 [Suspect]
     Indication: COLORECTAL CANCER
     Dosage: 300 mg, QD
     Route: 048
     Dates: start: 20090306, end: 20100827
  2. STI571 [Suspect]
     Dosage: 300 mg, QD
     Route: 048
     Dates: end: 20100915
  3. OXALIPLATIN [Suspect]
     Dosage: 200 mg, QW3
     Route: 042
     Dates: start: 20090306, end: 20100820
  4. OXALIPLATIN [Suspect]
     Dosage: 230 mg, QW3
     Route: 042
     Dates: end: 20100911
  5. CAPECITABINE [Suspect]
     Indication: COLORECTAL CANCER
     Dosage: 2000 mg, BID
     Route: 048
     Dates: start: 20090306, end: 20100827
  6. CAPECITABINE [Suspect]
     Dosage: 2000 mg, BID
     Route: 048
     Dates: end: 20100924
  7. BEVACIZUMAB [Suspect]
     Indication: COLORECTAL CANCER
     Dosage: 790 mg, QW3
     Route: 042
     Dates: start: 20090306, end: 20100820
  8. BEVACIZUMAB [Suspect]
     Dosage: UNK

REACTIONS (3)
  - Pancreatic carcinoma [Not Recovered/Not Resolved]
  - Pancreatitis [Not Recovered/Not Resolved]
  - Second primary malignancy [Not Recovered/Not Resolved]
